FAERS Safety Report 9288613 (Version 1)
Quarter: 2013Q2

REPORT INFORMATION
  Report Type: Spontaneous
  Country: GB (occurrence: GB)
  Receive Date: 20130514
  Receipt Date: 20130514
  Transmission Date: 20140414
  Serious: Yes (Death)
  Sender: FDA-Public Use
  Company Number: GB-TEVA-403776ISR

PATIENT
  Sex: Female

DRUGS (1)
  1. ARSENIC TRIOXIDE [Suspect]
     Route: 065

REACTIONS (1)
  - Acute hepatic failure [Fatal]
